FAERS Safety Report 10047242 (Version 1)
Quarter: 2014Q1

REPORT INFORMATION
  Report Type: Spontaneous
  Country: US (occurrence: US)
  Receive Date: 20140331
  Receipt Date: 20140331
  Transmission Date: 20141002
  Serious: Yes (Other)
  Sender: FDA-Public Use
  Company Number: US-BAYER-2014-044036

PATIENT
  Age: 27 Year
  Sex: Female

DRUGS (1)
  1. MIRENA [Suspect]
     Indication: CONTRACEPTION
     Dosage: 20 MCG/24HR, CONT
     Route: 015
     Dates: start: 201309, end: 20140214

REACTIONS (12)
  - Haemorrhagic ovarian cyst [None]
  - Rash [None]
  - Urticaria [None]
  - Weight decreased [None]
  - Alopecia [None]
  - Dizziness [None]
  - Confusional state [None]
  - Amnesia [None]
  - Anxiety [None]
  - Scar [None]
  - Pain [None]
  - Mental disorder [None]
